FAERS Safety Report 5846187-5 (Version None)
Quarter: 2008Q3

REPORT INFORMATION
  Report Type: 
  Country: None (occurrence: None)
  Receive Date: 20080813
  Receipt Date: 20080801
  Transmission Date: 20090109
  Serious: Yes (Hospitalization, Disabling)
  Sender: FDA-Public Use
  Company Number: 2008AL004235

PATIENT
  Age: 75 Year
  Sex: Male
  Weight: 93.8946 kg

DRUGS (5)
  1. DIGOXIN [Suspect]
     Indication: HEART RATE IRREGULAR
     Dosage: .125MG DAILY PO
     Route: 048
  2. PLAVIX [Concomitant]
  3. LOMAX [Concomitant]
  4. FINASTERIDE [Concomitant]
  5. CALCIUM [Concomitant]

REACTIONS (3)
  - DIZZINESS [None]
  - FALL [None]
  - HIP FRACTURE [None]
